FAERS Safety Report 26101694 (Version 1)
Quarter: 2025Q4

REPORT INFORMATION
  Report Type: Spontaneous
  Country: EU (occurrence: EU)
  Receive Date: 20251128
  Receipt Date: 20251128
  Transmission Date: 20260118
  Serious: Yes (Other)
  Sender: CIPLA
  Company Number: EU-AEMPS-1771966

PATIENT

DRUGS (11)
  1. AMBRISENTAN [Suspect]
     Active Substance: AMBRISENTAN
     Indication: Pulmonary arterial hypertension
     Dosage: UNK (FILM-COATED TABLET)
     Route: 065
     Dates: start: 20251014, end: 20251030
  2. OMEPRAZOLE [Concomitant]
     Active Substance: OMEPRAZOLE
     Indication: Oesophagitis
     Dosage: UNK
     Route: 065
     Dates: start: 2019
  3. TADALAFIL [Concomitant]
     Active Substance: TADALAFIL
     Indication: Pulmonary hypertension
     Dosage: 40 MILLIGRAM, QD
     Route: 065
     Dates: start: 20250625
  4. CIMETIDINE [Concomitant]
     Active Substance: CIMETIDINE
     Indication: Liver disorder
     Dosage: 1 MILLIGRAM, TID (EVERY 8 HOURS)
     Route: 065
     Dates: start: 202306
  5. LEUCOVORIN CALCIUM [Concomitant]
     Active Substance: LEUCOVORIN CALCIUM
     Indication: Liver disorder
     Dosage: UNK
     Route: 065
     Dates: start: 20231025
  6. PILOCARPINE HYDROCHLORIDE [Concomitant]
     Active Substance: PILOCARPINE HYDROCHLORIDE
     Indication: Sjogren^s syndrome
     Dosage: UNK
     Route: 065
     Dates: start: 202211
  7. ADALAT [Concomitant]
     Active Substance: NIFEDIPINE
     Indication: Interstitial lung disease
     Dosage: UNK
     Route: 065
     Dates: start: 202412
  8. SULFAMETHOXAZOLE\TRIMETHOPRIM [Concomitant]
     Active Substance: SULFAMETHOXAZOLE\TRIMETHOPRIM
     Indication: Sjogren^s syndrome
     Dosage: UNK
     Route: 065
     Dates: start: 202406
  9. CARVEDILOL [Concomitant]
     Active Substance: CARVEDILOL
     Indication: Varices oesophageal
     Dosage: UNK
     Route: 065
     Dates: start: 202412
  10. CALCIFEDIOL [Concomitant]
     Active Substance: CALCIFEDIOL
     Indication: Liver disorder
     Dosage: UNK
     Route: 065
     Dates: start: 202306
  11. CYMBALTA [Concomitant]
     Active Substance: DULOXETINE HYDROCHLORIDE
     Indication: Depression
     Dosage: UNK
     Route: 065
     Dates: start: 20240116

REACTIONS (5)
  - Neutropenia [Unknown]
  - Thrombocytopenia [Unknown]
  - Pyrexia [Unknown]
  - Anaemia [Unknown]
  - Oedema peripheral [Unknown]

NARRATIVE: CASE EVENT DATE: 20251001
